FAERS Safety Report 24993161 (Version 1)
Quarter: 2025Q1

REPORT INFORMATION
  Report Type: Spontaneous
  Country: FR (occurrence: None)
  Receive Date: 20250221
  Receipt Date: 20250221
  Transmission Date: 20250409
  Serious: Yes (Hospitalization)
  Sender: ORION
  Company Number: None

PATIENT
  Age: 65 Year
  Sex: Male
  Weight: 101 kg

DRUGS (2)
  1. METHOTREXATE [Suspect]
     Active Substance: METHOTREXATE
     Indication: Acute lymphocytic leukaemia
     Dates: start: 20220808, end: 20230831
  2. PURINETHOL [Suspect]
     Active Substance: MERCAPTOPURINE
     Indication: Acute lymphocytic leukaemia
     Dosage: STRENGTH: 50 MG
     Dates: start: 20220808, end: 20230831

REACTIONS (2)
  - Pancytopenia [Recovered/Resolved]
  - Campylobacter colitis [Recovered/Resolved]

NARRATIVE: CASE EVENT DATE: 20230801
